FAERS Safety Report 9734000 (Version 7)
Quarter: 2014Q4

REPORT INFORMATION
  Report Type: Report from Study
  Country: US (occurrence: US)
  Receive Date: 20131205
  Receipt Date: 20141031
  Transmission Date: 20150529
  Serious: Yes (Life-Threatening, Hospitalization, Disabling, Other)
  Sender: FDA-Public Use
  Company Number: US-ACTELION-A-US2013-91965

PATIENT
  Age: 50 Year
  Sex: Male

DRUGS (21)
  1. LEVOTHYROXINE [Concomitant]
     Active Substance: LEVOTHYROXINE
     Dosage: 125 MCG, QD
  2. TRACLEER [Suspect]
     Active Substance: BOSENTAN\BOSENTAN MONOHYDRATE
     Indication: PORTOPULMONARY HYPERTENSION
     Dosage: 125 MG, BID
     Route: 048
     Dates: start: 20130501
  3. ADVAIR HFA [Concomitant]
     Active Substance: FLUTICASONE PROPIONATE\SALMETEROL XINAFOATE
     Dosage: 1 PUFF, BID
  4. OMEPRAZOLE. [Concomitant]
     Active Substance: OMEPRAZOLE
     Dosage: 40 MG, QD
  5. DULERA [Concomitant]
     Active Substance: FORMOTEROL FUMARATE DIHYDRATE\MOMETASONE FUROATE
  6. ALBUTEROL. [Concomitant]
     Active Substance: ALBUTEROL
     Dosage: 2 PUFF, UNK
  7. SYNTHROID [Concomitant]
     Active Substance: LEVOTHYROXINE SODIUM
  8. MOMETASONE FUROATE. [Concomitant]
     Active Substance: MOMETASONE FUROATE
     Dosage: 1 SPRAY, PRN
  9. ALLOPURINOL. [Concomitant]
     Active Substance: ALLOPURINOL
     Dosage: 200 MG, QD
  10. MAG-OX [Concomitant]
     Dosage: 400 MG, BID
  11. OXYGEN. [Concomitant]
     Active Substance: OXYGEN
  12. VENTAVIS [Suspect]
     Active Substance: ILOPROST
     Indication: PORTOPULMONARY HYPERTENSION
     Dosage: 5 MCG, UNK
     Route: 055
     Dates: end: 201407
  13. LACTULOSE. [Concomitant]
     Active Substance: LACTULOSE
     Dosage: 30 MG, UNK
  14. OXYCODONE [Concomitant]
     Active Substance: OXYCODONE
  15. TRACLEER [Suspect]
     Active Substance: BOSENTAN\BOSENTAN MONOHYDRATE
     Dosage: 62.5 MG, BID
     Route: 048
  16. RIFAXIMIN [Concomitant]
     Active Substance: RIFAXIMIN
     Dosage: 550 MG, BID
  17. NASAL [Concomitant]
     Active Substance: OXYMETAZOLINE HYDROCHLORIDE
  18. FUROSEMIDE. [Concomitant]
     Active Substance: FUROSEMIDE
     Dosage: 80 MG, QD
  19. SPIRONOLACTONE. [Concomitant]
     Active Substance: SPIRONOLACTONE
     Dosage: 200 MG, UNK
  20. K-DUR [Concomitant]
     Active Substance: POTASSIUM CHLORIDE
     Dosage: 20 MEQ, UNK
  21. DUONEB [Concomitant]
     Active Substance: ALBUTEROL SULFATE\IPRATROPIUM BROMIDE

REACTIONS (13)
  - Mental status changes [Recovering/Resolving]
  - Transplant evaluation [Unknown]
  - Bone marrow disorder [Unknown]
  - Renal disorder [Not Recovered/Not Resolved]
  - Blood count abnormal [Unknown]
  - Blood iron decreased [Unknown]
  - Ammonia increased [Recovering/Resolving]
  - Altered state of consciousness [Recovering/Resolving]
  - Liver function test abnormal [Not Recovered/Not Resolved]
  - Nausea [Recovering/Resolving]
  - Hepatic failure [Unknown]
  - Splenomegaly [Not Recovered/Not Resolved]
  - Hepatic encephalopathy [Recovering/Resolving]

NARRATIVE: CASE EVENT DATE: 20130513
